FAERS Safety Report 6891537-4 (Version None)
Quarter: 2010Q3

REPORT INFORMATION
  Report Type: 
  Country: None (occurrence: None)
  Receive Date: 20100731
  Receipt Date: 20080110
  Transmission Date: 20110219
  Serious: No
  Sender: FDA-Public Use
  Company Number: US-PFIZER INC-2006126353

PATIENT
  Sex: Male

DRUGS (1)
  1. DEPO-MEDROL [Suspect]
     Route: 031
     Dates: start: 20061006

REACTIONS (2)
  - ABNORMAL SENSATION IN EYE [None]
  - ACCIDENTAL EXPOSURE [None]
